FAERS Safety Report 24307618 (Version 1)
Quarter: 2024Q3

REPORT INFORMATION
  Report Type: Spontaneous
  Country: US (occurrence: US)
  Receive Date: 20240911
  Receipt Date: 20240911
  Transmission Date: 20241017
  Serious: No
  Sender: CELLTRION
  Company Number: US-CELLTRION INC.-2024US018157

PATIENT

DRUGS (12)
  1. ZYMFENTRA [Suspect]
     Active Substance: INFLIXIMAB-DYYB
     Indication: Colitis ulcerative
     Dosage: 120 MG, EVERY 2 WEEKS
     Route: 058
     Dates: start: 20240620
  2. MERCAPTOPURINE [Concomitant]
     Active Substance: MERCAPTOPURINE
     Dosage: 50 MG ONCE DAILY
  3. CYANOCOBALAMIN [Concomitant]
     Active Substance: CYANOCOBALAMIN
  4. FOLATE SODIUM [Concomitant]
     Active Substance: FOLATE SODIUM
  5. MAGNESIUM [Concomitant]
     Active Substance: MAGNESIUM
  6. LISINOPRIL [Concomitant]
     Active Substance: LISINOPRIL
     Indication: Hypertension
     Dosage: 5 MG DAILY
  7. HYDROCHLOROTHIAZIDE [Concomitant]
     Active Substance: HYDROCHLOROTHIAZIDE
     Indication: Hypertension
     Dosage: 25 MG DAILY
  8. IRON [Concomitant]
     Active Substance: IRON
     Dosage: ONCE DAILY
  9. BIOTIN [Concomitant]
     Active Substance: BIOTIN
     Dosage: 2500 MG GUMMY ONCE DAILY
  10. VITAMINS NOS [Concomitant]
     Active Substance: VITAMINS
     Dosage: GUMMY ONCE DAILY
  11. OMEPRAZOLE [Concomitant]
     Active Substance: OMEPRAZOLE
     Dosage: 20 MG ONCE DAILY
  12. VITAMIN D3 [Concomitant]
     Active Substance: CHOLECALCIFEROL
     Dosage: ONCE DAILY

REACTIONS (1)
  - Fatigue [Recovered/Resolved]

NARRATIVE: CASE EVENT DATE: 20240701
